FAERS Safety Report 18163172 (Version 2)
Quarter: 2021Q1

REPORT INFORMATION
  Report Type: Report from Study
  Country: US (occurrence: US)
  Receive Date: 20200818
  Receipt Date: 20210315
  Transmission Date: 20210419
  Serious: Yes (Hospitalization)
  Sender: FDA-Public Use
  Company Number: US-SA-2020SA215085

PATIENT
  Age: 62 Year
  Sex: Female
  Weight: 106.5 kg

DRUGS (2)
  1. DUPILUMAB [Suspect]
     Active Substance: DUPILUMAB
     Indication: ASTHMA
     Dosage: UNK, 1X
     Route: 058
     Dates: start: 20190327, end: 20190327
  2. DUPILUMAB [Suspect]
     Active Substance: DUPILUMAB
     Dosage: 300 MG, QOW
     Route: 058

REACTIONS (3)
  - Product use issue [Unknown]
  - Asthma [Unknown]
  - Therapy cessation [Unknown]

NARRATIVE: CASE EVENT DATE: 2020
